FAERS Safety Report 9882834 (Version 2)
Quarter: 2014Q2

REPORT INFORMATION
  Report Type: Report from Study
  Country: DE (occurrence: DE)
  Receive Date: 20140207
  Receipt Date: 20140417
  Transmission Date: 20141212
  Serious: Yes (Death, Other)
  Sender: FDA-Public Use
  Company Number: DE-ABBVIE-14P-062-1198677-00

PATIENT
  Age: 79 Year
  Sex: Female

DRUGS (6)
  1. HUMIRA [Suspect]
     Indication: RHEUMATOID ARTHRITIS
     Route: 058
     Dates: start: 200902, end: 201003
  2. AZATHIOPRINE [Suspect]
     Indication: PRODUCT USED FOR UNKNOWN INDICATION
     Dosage: 1-0-1
     Dates: start: 201307, end: 201309
  3. LEFLUNOMIDE [Concomitant]
     Indication: PRODUCT USED FOR UNKNOWN INDICATION
     Dates: start: 200707, end: 201007
  4. LEFLUNOMIDE [Concomitant]
     Dates: start: 201103, end: 201307
  5. PREDNI H [Concomitant]
     Indication: PRODUCT USED FOR UNKNOWN INDICATION
     Dates: start: 200609, end: 201309
  6. CALCIGEN D [Concomitant]
     Indication: PRODUCT USED FOR UNKNOWN INDICATION
     Dates: start: 200609, end: 201309

REACTIONS (8)
  - Cachexia [Fatal]
  - Malnutrition [Fatal]
  - Depression [Fatal]
  - General physical health deterioration [Unknown]
  - Duodenal sphincterotomy [Unknown]
  - Calculus urinary [Unknown]
  - Weight decreased [Unknown]
  - Decubitus ulcer [Unknown]
